FAERS Safety Report 4972221-0 (Version None)
Quarter: 2006Q2

REPORT INFORMATION
  Report Type: 
  Country: None (occurrence: None)
  Receive Date: 20060413
  Receipt Date: 20060405
  Transmission Date: 20061013
  Serious: Yes (Other)
  Sender: FDA-Public Use
  Company Number: IT-GLAXOSMITHKLINE-B0420100A

PATIENT
  Age: 25 Year
  Sex: Female

DRUGS (2)
  1. AMOXYCILLIN + CLAVULANIC ACID [Suspect]
     Indication: ANTIBIOTIC PROPHYLAXIS
     Dates: start: 20060404, end: 20060404
  2. CLAVULIN [Suspect]
     Route: 048

REACTIONS (2)
  - ANGIONEUROTIC OEDEMA [None]
  - LARYNGEAL OEDEMA [None]
